FAERS Safety Report 11275302 (Version 1)
Quarter: 2015Q3

REPORT INFORMATION
  Report Type: Spontaneous
  Country: US (occurrence: None)
  Receive Date: 20150715
  Receipt Date: 20150715
  Transmission Date: 20151125
  Serious: Yes (Other)
  Sender: FDA-Public Use
  Company Number: None

PATIENT
  Age: 71 Year
  Sex: Female

DRUGS (1)
  1. SUTENT [Suspect]
     Active Substance: SUNITINIB MALATE
     Indication: NEOPLASM MALIGNANT
     Route: 048
     Dates: start: 20120725, end: 20150602

REACTIONS (4)
  - Yellow skin [None]
  - Thyroid disorder [None]
  - Anaemia [None]
  - Skin discolouration [None]

NARRATIVE: CASE EVENT DATE: 20150602
